FAERS Safety Report 8539681-X (Version None)
Quarter: 2012Q3

REPORT INFORMATION
  Report Type: 
  Country: None (occurrence: None)
  Receive Date: 20120726
  Receipt Date: 20120109
  Transmission Date: 20120928
  Serious: No
  Sender: FDA-Public Use
  Company Number: US-ASTRAZENECA-2009SE12973

PATIENT
  Age: 17589 Day
  Sex: Male

DRUGS (12)
  1. SEROQUEL [Suspect]
     Route: 048
     Dates: start: 20040820
  2. LIPITOR [Concomitant]
     Dates: start: 20040820
  3. ASPIRIN [Concomitant]
     Dates: start: 20040820
  4. RISPERDAL [Concomitant]
     Dates: start: 20040820
  5. SEROQUEL [Suspect]
     Route: 048
     Dates: start: 20050101
  6. XANAX [Concomitant]
     Dates: start: 20040820
  7. TRILEPTAL [Concomitant]
     Dates: start: 20040820
  8. GEODON [Concomitant]
     Dates: start: 20040820
  9. SEROQUEL [Suspect]
     Route: 048
  10. WELLBUTRIN XL [Concomitant]
  11. HALCION [Concomitant]
     Dates: start: 20040820
  12. NEURONTIN [Concomitant]
     Dates: start: 20040820

REACTIONS (3)
  - TYPE 2 DIABETES MELLITUS [None]
  - OBESITY [None]
  - WEIGHT INCREASED [None]
